FAERS Safety Report 8301215-2 (Version None)
Quarter: 2012Q2

REPORT INFORMATION
  Report Type: 
  Country: None (occurrence: None)
  Receive Date: 20120420
  Receipt Date: 20120420
  Transmission Date: 20120825
  Serious: Yes (Other)
  Sender: FDA-Public Use
  Company Number: None

PATIENT
  Sex: Male
  Weight: 58.6 kg

DRUGS (1)
  1. HALOPERIDOL [Suspect]
     Dosage: 2.5MG
     Route: 042

REACTIONS (6)
  - TREMOR [None]
  - HEART RATE INCREASED [None]
  - BLOOD GLUCOSE INCREASED [None]
  - DRUG HYPERSENSITIVITY [None]
  - OXYGEN SATURATION DECREASED [None]
  - HYPERHIDROSIS [None]
